FAERS Safety Report 18357471 (Version 1)
Quarter: 2020Q4

REPORT INFORMATION
  Report Type: Spontaneous
  Country: FR (occurrence: FR)
  Receive Date: 20201007
  Receipt Date: 20201007
  Transmission Date: 20210114
  Serious: Yes (Hospitalization)
  Sender: FDA-Public Use
  Company Number: FR-VERTEX PHARMACEUTICALS-2020-019481

PATIENT
  Age: 15 Year
  Sex: Female
  Weight: 50 kg

DRUGS (3)
  1. ORKAMBI [Suspect]
     Active Substance: IVACAFTOR\LUMACAFTOR
     Indication: CYSTIC FIBROSIS
     Dosage: 4 DOSAGE FORM, QD
     Route: 048
     Dates: start: 20200605
  2. RHINOCORT [Concomitant]
     Active Substance: BUDESONIDE
     Dosage: 64 MICROGRAMMES/DOSE, SUSPENSION POUR PULV?RISATION
     Route: 045
  3. SALBUTAMOL [Concomitant]
     Active Substance: ALBUTEROL

REACTIONS (1)
  - Bacterial disease carrier [Recovered/Resolved]

NARRATIVE: CASE EVENT DATE: 20200702
